FAERS Safety Report 18544791 (Version 2)
Quarter: 2020Q4

REPORT INFORMATION
  Report Type: Spontaneous
  Country: US (occurrence: US)
  Receive Date: 20201125
  Receipt Date: 20201229
  Transmission Date: 20210114
  Serious: No
  Sender: FDA-Public Use
  Company Number: US-TOLMAR, INC.-20US023718

PATIENT
  Age: 39 Year
  Sex: Female

DRUGS (3)
  1. METRONIDAZOLE. [Concomitant]
     Active Substance: METRONIDAZOLE
     Indication: ROSACEA
     Dosage: UNK
     Route: 061
     Dates: start: 202010
  2. AZELAIC ACID. [Suspect]
     Active Substance: AZELAIC ACID
     Indication: ROSACEA
     Dosage: UNK, QD AT BEDTIME
     Route: 061
     Dates: start: 20201022, end: 20201023
  3. AZELAIC ACID. [Suspect]
     Active Substance: AZELAIC ACID
     Indication: ACNE

REACTIONS (2)
  - Hypersensitivity [Recovered/Resolved]
  - Skin burning sensation [Recovered/Resolved]

NARRATIVE: CASE EVENT DATE: 202010
